FAERS Safety Report 5467964-9 (Version None)
Quarter: 2007Q3

REPORT INFORMATION
  Report Type: 
  Country: None (occurrence: None)
  Receive Date: 20070926
  Receipt Date: 20070917
  Transmission Date: 20080115
  Serious: Yes (Hospitalization)
  Sender: FDA-Public Use
  Company Number: US-TYCO HEALTHCARE/MALLINCKRODT-T200701108

PATIENT

DRUGS (12)
  1. ACETAMINOPHEN AND OXYCODONE HCL [Suspect]
     Indication: PROCEDURAL PAIN
     Dosage: 1-2 TABLETS Q6H
     Route: 048
     Dates: start: 20070909, end: 20070909
  2. TYLENOL (CAPLET) [Suspect]
     Indication: PROCEDURAL PAIN
     Route: 048
     Dates: start: 20070909, end: 20070909
  3. LIPITOR [Concomitant]
     Indication: HYPERCHOLESTEROLAEMIA
     Dosage: 20 MG, QD
     Route: 048
  4. PRINZIDE                           /00977901/ [Concomitant]
     Indication: HYPERTENSION
     Dosage: 1, QD
     Route: 048
  5. ADVAIR DISKUS 100/50 [Concomitant]
     Indication: ASTHMA
  6. PREVACID [Concomitant]
     Indication: GASTROOESOPHAGEAL REFLUX DISEASE
     Dosage: 30 MG, QD
     Route: 048
  7. FOSAMAX [Concomitant]
     Indication: OSTEOPOROSIS
     Dosage: WEEKLY
     Route: 048
  8. ALBUTEROL [Concomitant]
     Route: 048
  9. NASACORT [Concomitant]
  10. PATANOL [Concomitant]
     Route: 047
  11. ALLEGRA [Concomitant]
     Indication: HYPERSENSITIVITY
     Route: 048
  12. COUMADIN [Concomitant]
     Indication: EMBOLISM
     Route: 048

REACTIONS (2)
  - PHARYNGEAL OEDEMA [None]
  - SWOLLEN TONGUE [None]
